FAERS Safety Report 5995634-7 (Version None)
Quarter: 2008Q4

REPORT INFORMATION
  Report Type: 
  Country: None (occurrence: None)
  Receive Date: 20081212
  Receipt Date: 20080930
  Transmission Date: 20090506
  Serious: No
  Sender: FDA-Public Use
  Company Number: US-ABBOTT-08P-163-0479559-00

PATIENT
  Sex: Female

DRUGS (3)
  1. HUMIRA [Suspect]
     Indication: RHEUMATOID ARTHRITIS
     Route: 058
     Dates: start: 20080927
  2. HUMIRA [Suspect]
     Dosage: PRE-FILLED SYRINGE
     Route: 058
  3. HUMIRA [Suspect]
     Dosage: PRE-FILLED SYRINGE
     Route: 058
     Dates: start: 20070101

REACTIONS (3)
  - ACCIDENTAL EXPOSURE [None]
  - INJECTION SITE HAEMORRHAGE [None]
  - INJECTION SITE PAIN [None]
